FAERS Safety Report 8420872-3 (Version None)
Quarter: 2012Q2

REPORT INFORMATION
  Report Type: 
  Country: None (occurrence: None)
  Receive Date: 20120531
  Receipt Date: 20120515
  Transmission Date: 20120825
  Serious: Yes (Disabling)
  Sender: FDA-Public Use
  Company Number: THQ2012A04452

PATIENT
  Age: 71 Year
  Sex: Male

DRUGS (5)
  1. VALSARTAN [Concomitant]
  2. PRAVASTATIN [Concomitant]
  3. LANSOPRAZOLE [Suspect]
     Indication: GASTROOESOPHAGEAL REFLUX DISEASE
     Dosage: 30 MG PER ORAL
     Route: 048
     Dates: start: 20081008, end: 20120320
  4. ASPIRIN [Concomitant]
  5. LAXIDO (ALL OTHER THERAPEUTIC PRODUCTS) [Concomitant]

REACTIONS (3)
  - INTERMITTENT CLAUDICATION [None]
  - CONDITION AGGRAVATED [None]
  - ABDOMINAL PAIN [None]
